FAERS Safety Report 9910240 (Version 1)
Quarter: 2014Q1

REPORT INFORMATION
  Report Type: Spontaneous
  Country: US (occurrence: US)
  Receive Date: 20140219
  Receipt Date: 20140219
  Transmission Date: 20141002
  Serious: No
  Sender: FDA-Public Use
  Company Number: US-BAYER-2014-025820

PATIENT
  Age: 94 Year
  Sex: Male
  Weight: 68.03 kg

DRUGS (3)
  1. ALEVE TABLET [Suspect]
     Dosage: 1 DF, BID
     Route: 048
     Dates: start: 201312
  2. COQ10 [Concomitant]
  3. VITAMIN B NOS [Concomitant]

REACTIONS (2)
  - Gastrooesophageal reflux disease [Recovered/Resolved]
  - Incorrect drug administration duration [None]
